FAERS Safety Report 6075351-8 (Version None)
Quarter: 2009Q1

REPORT INFORMATION
  Report Type: 
  Country: None (occurrence: None)
  Receive Date: 20090212
  Receipt Date: 20090206
  Transmission Date: 20090719
  Serious: Yes (Hospitalization)
  Sender: FDA-Public Use
  Company Number: SE-ABBOTT-09P-150-0498894-00

PATIENT
  Age: 62 Year
  Sex: Male

DRUGS (1)
  1. ZEMPLAR [Suspect]
     Indication: HYPERPARATHYROIDISM
     Dosage: 5 MCG/ML
     Dates: start: 20080619

REACTIONS (17)
  - ASCITES [None]
  - CANDIDIASIS [None]
  - FUNGAL INFECTION [None]
  - PAIN IN EXTREMITY [None]
  - PURULENT DISCHARGE [None]
  - SEPSIS [None]
  - SERRATIA INFECTION [None]
  - SKIN EXFOLIATION [None]
  - SKIN ULCER [None]
  - STAPHYLOCOCCAL INFECTION [None]
  - SWELLING [None]
  - TENDERNESS [None]
  - THIRST [None]
  - WEIGHT INCREASED [None]
  - WOUND [None]
  - WOUND DRAINAGE [None]
  - WOUND NECROSIS [None]
